FAERS Safety Report 13965553 (Version 2)
Quarter: 2018Q1

REPORT INFORMATION
  Report Type: Spontaneous
  Country: US (occurrence: US)
  Receive Date: 20170913
  Receipt Date: 20180130
  Transmission Date: 20180508
  Serious: Yes (Other)
  Sender: FDA-Public Use
  Company Number: US-PFIZER INC-2017391099

PATIENT
  Age: 63 Year
  Sex: Female
  Weight: 77 kg

DRUGS (8)
  1. DULOXETINE. [Concomitant]
     Active Substance: DULOXETINE
     Indication: DEPRESSION
     Dosage: 60 MG, 1X/DAY (60MG CAPSULE ONE A DAY AT NIGHT)
     Dates: start: 201701
  2. SYNTHROID [Concomitant]
     Active Substance: LEVOTHYROXINE SODIUM
     Indication: THYROID DISORDER
     Dosage: 75 MG, DAILY (75MG TABLETS IN THE MORNING)
  3. VALSARTAN. [Concomitant]
     Active Substance: VALSARTAN
     Indication: HYPERTENSION
     Dosage: 320 MG, 1X/DAY (320MG ONE TABLET A DAY)
  4. PREMARIN [Suspect]
     Active Substance: ESTROGENS, CONJUGATED
     Indication: VULVOVAGINAL DRYNESS
     Dosage: UNK UNK, 2X/WEEK (UNKNOWN DOSE; INSERTING TWICE A WEEK VAGINALLY)
     Route: 067
     Dates: end: 201704
  5. PRAVASTATIN SODIUM. [Concomitant]
     Active Substance: PRAVASTATIN SODIUM
     Indication: BLOOD CHOLESTEROL ABNORMAL
     Dosage: 4 MG, 1X/DAY
  6. METFORMIN [Concomitant]
     Active Substance: METFORMIN HYDROCHLORIDE
     Indication: DIABETES MELLITUS
     Dosage: 500 MG, 2X/DAY (500MG TABLET ONE IN MORNING AND AFTERNOON)
  7. ALPRAZOLAM. [Concomitant]
     Active Substance: ALPRAZOLAM
     Indication: ANXIETY
     Dosage: 0.25MG TABLETS, HALF TABLET AS NEEDED
  8. FERGON [Concomitant]
     Active Substance: FERROUS GLUCONATE
     Indication: IRON DEFICIENCY ANAEMIA
     Dosage: 65 MG, 1X/DAY (65MG ONE TABLET A DAY)
     Dates: start: 201703

REACTIONS (8)
  - Pelvic fluid collection [Recovered/Resolved]
  - Abdominal pain upper [Unknown]
  - Ovarian cyst [Unknown]
  - Ascites [Recovered/Resolved]
  - Dyspnoea [Unknown]
  - Abdominal distension [Recovering/Resolving]
  - Vaginal haemorrhage [Recovered/Resolved]
  - Ovarian cancer [Recovered/Resolved]

NARRATIVE: CASE EVENT DATE: 201702
